FAERS Safety Report 25656900 (Version 1)
Quarter: 2025Q3

REPORT INFORMATION
  Report Type: Spontaneous
  Country: IL (occurrence: IL)
  Receive Date: 20250807
  Receipt Date: 20250807
  Transmission Date: 20251020
  Serious: Yes (Life-Threatening, Other)
  Sender: DAIICHI
  Company Number: IL-AstraZeneca-CH-00924167A

PATIENT
  Sex: Female

DRUGS (1)
  1. TRASTUZUMAB DERUXTECAN [Suspect]
     Active Substance: TRASTUZUMAB DERUXTECAN
     Indication: Biliary tract disorder
     Dosage: 5.4 MILLIGRAM/KILOGRAM, Q3W
     Route: 040
     Dates: start: 20241030, end: 20250428

REACTIONS (2)
  - Interstitial lung disease [Unknown]
  - Pancytopenia [Unknown]
